FAERS Safety Report 7058998-1 (Version None)
Quarter: 2010Q4

REPORT INFORMATION
  Report Type: 
  Country: None (occurrence: None)
  Receive Date: 20101025
  Receipt Date: 20101018
  Transmission Date: 20110411
  Serious: Yes (Hospitalization)
  Sender: FDA-Public Use
  Company Number: US-BIOGENIDEC-2010BI035929

PATIENT
  Age: 47 Year
  Sex: Female

DRUGS (2)
  1. TYSABRI [Suspect]
     Indication: MULTIPLE SCLEROSIS
     Route: 042
     Dates: start: 20100721
  2. MEDICATION NOS [Concomitant]
     Indication: HYPERTENSION
     Dates: end: 20101001

REACTIONS (5)
  - HYPOTENSION [None]
  - MULTIPLE SCLEROSIS RELAPSE [None]
  - NEUROLOGICAL SYMPTOM [None]
  - SPEECH DISORDER [None]
  - WEIGHT DECREASED [None]
